FAERS Safety Report 21727412 (Version 1)
Quarter: 2022Q4

REPORT INFORMATION
  Report Type: Spontaneous
  Country: DE (occurrence: DE)
  Receive Date: 20221214
  Receipt Date: 20221214
  Transmission Date: 20230113
  Serious: Yes (Other)
  Sender: FDA-Public Use
  Company Number: DE-PFIZER INC-PV202200116080

PATIENT
  Age: 44 Year
  Sex: Female

DRUGS (1)
  1. PAXLOVID [Suspect]
     Active Substance: NIRMATRELVIR\RITONAVIR
     Indication: COVID-19
     Dosage: UNK FOR 5 DAYS
     Route: 048

REACTIONS (4)
  - COVID-19 [Unknown]
  - Gastrointestinal disorder [Unknown]
  - Rectal tenesmus [Unknown]
  - Diarrhoea [Unknown]
